FAERS Safety Report 9129484 (Version 1)
Quarter: 2013Q1

REPORT INFORMATION
  Report Type: Spontaneous
  Country: FR (occurrence: FR)
  Receive Date: 20130228
  Receipt Date: 20130228
  Transmission Date: 20140127
  Serious: Yes (Other)
  Sender: FDA-Public Use
  Company Number: FR-GLAXOSMITHKLINE-B0868463A

PATIENT
  Age: 23 Year
  Sex: Female
  Weight: 82 kg

DRUGS (6)
  1. LAMICTAL [Suspect]
     Indication: DEPRESSION
     Dosage: 50MG PER DAY
     Route: 048
     Dates: start: 201207, end: 20121008
  2. ZOLOFT [Suspect]
     Dates: start: 201207, end: 20121008
  3. ALPRAZOLAM [Concomitant]
     Indication: DEPRESSION
     Dates: end: 201207
  4. VENLAFAXINE [Concomitant]
     Indication: DEPRESSION
     Dates: end: 201207
  5. CYAMEMAZINE [Concomitant]
     Indication: DEPRESSION
     Dates: end: 201207
  6. GESTODEN + ETHINYLESTRADIOL [Concomitant]
     Indication: CONTRACEPTION
     Route: 048

REACTIONS (3)
  - Abortion induced [Unknown]
  - Exposure during pregnancy [Unknown]
  - Incorrect dose administered [Unknown]
